FAERS Safety Report 8016453-6 (Version None)
Quarter: 2011Q4

REPORT INFORMATION
  Report Type: 
  Country: None (occurrence: None)
  Receive Date: 20111230
  Receipt Date: 20111223
  Transmission Date: 20120403
  Serious: Yes (Hospitalization)
  Sender: FDA-Public Use
  Company Number: CA-ABBOTT-11P-028-0886216-00

PATIENT
  Sex: Female
  Weight: 37.228 kg

DRUGS (8)
  1. HUMIRA [Suspect]
  2. FLAGYL [Concomitant]
     Indication: CROHN'S DISEASE
     Route: 048
  3. CIPROFLOXACIN [Concomitant]
     Indication: CROHN'S DISEASE
     Route: 048
  4. HUMIRA [Suspect]
     Dosage: 160MG LOADING DOSE
     Route: 058
     Dates: start: 20111208, end: 20111208
  5. HUMIRA [Suspect]
     Route: 058
     Dates: start: 20111222
  6. VALACYCLOVIR [Concomitant]
     Indication: HERPES ZOSTER
     Route: 048
     Dates: start: 20111206
  7. VALACYCLOVIR [Concomitant]
     Indication: PROPHYLAXIS
  8. HUMIRA [Suspect]
     Indication: CROHN'S DISEASE
     Dosage: LOADING DOSE
     Route: 058
     Dates: start: 20101217, end: 20101217

REACTIONS (6)
  - DIARRHOEA [None]
  - MUSCLE SPASMS [None]
  - ABDOMINAL PAIN [None]
  - CROHN'S DISEASE [None]
  - WEIGHT DECREASED [None]
  - RECTAL ULCER [None]
